FAERS Safety Report 25176308 (Version 3)
Quarter: 2025Q2

REPORT INFORMATION
  Report Type: Spontaneous
  Country: AU (occurrence: AU)
  Receive Date: 20250409
  Receipt Date: 20250521
  Transmission Date: 20250716
  Serious: Yes (Other)
  Sender: TAKEDA
  Company Number: AU-TAKEDA-2025TUS033495

PATIENT
  Age: 34 Year
  Sex: Female

DRUGS (2)
  1. VYVANSE [Suspect]
     Active Substance: LISDEXAMFETAMINE DIMESYLATE
     Indication: Attention deficit hyperactivity disorder
     Dosage: 50 MILLIGRAM, QD
     Dates: start: 20250301, end: 20250331
  2. DEXTROAMPHETAMINE [Concomitant]
     Active Substance: DEXTROAMPHETAMINE

REACTIONS (40)
  - Suicidal ideation [Recovering/Resolving]
  - Product odour abnormal [Unknown]
  - Abnormal behaviour [Unknown]
  - Apathy [Recovering/Resolving]
  - Asthenia [Unknown]
  - Change in sustained attention [Unknown]
  - Crying [Unknown]
  - Disturbance in attention [Recovering/Resolving]
  - Drug ineffective [Unknown]
  - Emotional disorder [Recovering/Resolving]
  - Food craving [Recovering/Resolving]
  - Mood altered [Unknown]
  - Motor dysfunction [Unknown]
  - Stress [Unknown]
  - Muscle twitching [Unknown]
  - Onychophagia [Unknown]
  - Product label issue [Unknown]
  - Product outer packaging issue [Unknown]
  - Product physical issue [Unknown]
  - Restless legs syndrome [Unknown]
  - Trichotillomania [Unknown]
  - Weight fluctuation [Unknown]
  - Muscle tightness [Recovering/Resolving]
  - Speech disorder [Unknown]
  - Muscle spasms [Unknown]
  - Migraine [Unknown]
  - Pain [Recovered/Resolved]
  - Depression [Recovering/Resolving]
  - Anger [Recovering/Resolving]
  - Anxiety [Recovering/Resolving]
  - Bruxism [Unknown]
  - Dermatillomania [Unknown]
  - Dizziness [Unknown]
  - Fatigue [Recovered/Resolved]
  - Insomnia [Unknown]
  - Irritability [Recovering/Resolving]
  - Nausea [Unknown]
  - Restlessness [Unknown]
  - Vision blurred [Unknown]
  - Headache [Unknown]

NARRATIVE: CASE EVENT DATE: 20250301
